FAERS Safety Report 7645070-2 (Version None)
Quarter: 2011Q3

REPORT INFORMATION
  Report Type: 
  Country: None (occurrence: None)
  Receive Date: 20110725
  Receipt Date: 20110711
  Transmission Date: 20111222
  Serious: Yes (Hospitalization, Other)
  Sender: FDA-Public Use
  Company Number: 2011P1007704

PATIENT
  Age: 78 Year
  Sex: Male

DRUGS (2)
  1. CLINDAMYCIN [Suspect]
     Indication: MEDICAL DEVICE IMPLANTATION
     Dosage: 150 MG; PO
     Route: 048
  2. CLINDAMYCIN [Suspect]
     Indication: PROPHYLAXIS
     Dosage: 150 MG; PO
     Route: 048

REACTIONS (10)
  - BODY TEMPERATURE INCREASED [None]
  - LARYNGEAL DISORDER [None]
  - DYSPHONIA [None]
  - THROAT IRRITATION [None]
  - RESPIRATORY DISTRESS [None]
  - COUGH [None]
  - PNEUMONIA ASPIRATION [None]
  - CAPSULE PHYSICAL ISSUE [None]
  - HYPERAEMIA [None]
  - SYNCOPE [None]
